FAERS Safety Report 4532037-6 (Version None)
Quarter: 2004Q4

REPORT INFORMATION
  Report Type: 
  Country: None (occurrence: None)
  Receive Date: 20041220
  Receipt Date: 20041111
  Transmission Date: 20050328
  Serious: Yes (Other)
  Sender: FDA-Public Use
  Company Number: AU-GLAXOSMITHKLINE-B0357358A

PATIENT
  Age: 63 Year
  Sex: Male
  Weight: 60 kg

DRUGS (2)
  1. ZYBAN [Suspect]
     Dates: start: 20041013
  2. LISINOPRIL [Concomitant]
     Indication: BLOOD PRESSURE
     Route: 065

REACTIONS (4)
  - ASTHENIA [None]
  - CONSTIPATION [None]
  - DRY MOUTH [None]
  - VENTRICULAR TACHYCARDIA [None]
